FAERS Safety Report 10059209 (Version 3)
Quarter: 2014Q2

REPORT INFORMATION
  Report Type: Spontaneous
  Country: US (occurrence: US)
  Receive Date: 20140404
  Receipt Date: 20140421
  Transmission Date: 20141212
  Serious: Yes (Hospitalization, Other)
  Sender: FDA-Public Use
  Company Number: 2013SP008708

PATIENT
  Age: 73 Year
  Sex: Male
  Weight: 72.7 kg

DRUGS (17)
  1. OXALIPLATIN [Suspect]
     Indication: PANCREATIC CARCINOMA
     Route: 042
     Dates: start: 20130930, end: 20131111
  2. FLUOROURACIL [Suspect]
     Indication: PANCREATIC CARCINOMA
     Route: 040
     Dates: start: 20130930, end: 20131111
  3. FLUOROURACIL [Suspect]
     Indication: PANCREATIC CARCINOMA
     Route: 042
     Dates: start: 20130930, end: 20131111
  4. IRINOTECAN [Suspect]
     Indication: PANCREATIC CARCINOMA
     Route: 042
     Dates: start: 20130930, end: 20131111
  5. FOLINIC ACID [Suspect]
     Indication: PANCREATIC CARCINOMA
     Route: 042
     Dates: start: 20130930, end: 20131111
  6. MARINOL /00897601/ [Concomitant]
  7. ALBUTEROL /00139501/ [Concomitant]
  8. ASPIRIN [Concomitant]
  9. ATORVASTATIN [Concomitant]
  10. CALCIUM CHLORIDE [Concomitant]
  11. NITROSTAT [Concomitant]
  12. CLOPIDOGREL [Concomitant]
  13. ENOXAPARIN [Concomitant]
  14. HYDROCODONE W/ACETAMINOPHEN [Concomitant]
  15. LOSARTAN [Concomitant]
  16. SYMBICORT [Concomitant]
  17. TERAZOSIN [Concomitant]

REACTIONS (2)
  - Subdural haematoma [Recovered/Resolved]
  - Convulsion [Recovered/Resolved]
